FAERS Safety Report 6026453-3 (Version None)
Quarter: 2009Q1

REPORT INFORMATION
  Report Type: 
  Country: None (occurrence: None)
  Receive Date: 20090102
  Receipt Date: 20081223
  Transmission Date: 20090719
  Serious: Yes (Hospitalization)
  Sender: FDA-Public Use
  Company Number: GB-PFIZER INC-2008152837

PATIENT

DRUGS (5)
  1. SOMATROPIN [Suspect]
     Indication: HYPOPITUITARISM
     Dosage: 0.3 MG, 1X/DAY
     Dates: start: 20020829
  2. SOMATROPIN [Suspect]
     Dosage: 0.4 MG, 1X/DAY
  3. EVOREL [Concomitant]
     Dosage: UNK, 1X/DAY
     Route: 062
  4. LEVOTHYROXINE SODIUM [Concomitant]
     Dosage: 50 UG, 1X/DAY
     Route: 048
     Dates: start: 19980215
  5. BETAHISTINE [Concomitant]

REACTIONS (3)
  - HIATUS HERNIA [None]
  - MENIERE'S DISEASE [None]
  - OESOPHAGITIS [None]
